FAERS Safety Report 22717032 (Version 4)
Quarter: 2024Q1

REPORT INFORMATION
  Report Type: Spontaneous
  Country: US (occurrence: US)
  Receive Date: 20230718
  Receipt Date: 20240315
  Transmission Date: 20240409
  Serious: No
  Sender: FDA-Public Use
  Company Number: US-PFIZER INC-2016121748

PATIENT
  Age: 38 Year
  Sex: Female
  Weight: 70.31 kg

DRUGS (8)
  1. XELJANZ [Suspect]
     Active Substance: TOFACITINIB CITRATE
     Indication: Alopecia universalis
     Dosage: 10 MG, 2X/DAY
     Route: 048
     Dates: start: 201512
  2. XELJANZ [Suspect]
     Active Substance: TOFACITINIB CITRATE
     Indication: Alopecia areata
     Dosage: 5 MG, 2X/DAY
     Route: 048
  3. XELJANZ [Suspect]
     Active Substance: TOFACITINIB CITRATE
     Dosage: 10 MG, 2X/DAY
     Route: 048
  4. XELJANZ [Suspect]
     Active Substance: TOFACITINIB CITRATE
     Dosage: 2 TABLETS TWICE A DAY, TAKES 4 A DAY
     Route: 048
  5. XELJANZ [Suspect]
     Active Substance: TOFACITINIB CITRATE
     Dosage: 10 MG, 1X/DAY
  6. LISINOPRIL [Concomitant]
     Active Substance: LISINOPRIL
     Dosage: 10 MG, 1X/DAY
     Route: 048
  7. IRON [Concomitant]
     Active Substance: IRON
     Dosage: UNK
  8. VITAMIN C [Concomitant]
     Active Substance: ASCORBIC ACID
     Dosage: UNK

REACTIONS (3)
  - Full blood count decreased [Recovered/Resolved]
  - Off label use [Unknown]
  - Intentional product use issue [Unknown]

NARRATIVE: CASE EVENT DATE: 20160323
